FAERS Safety Report 6817936-4 (Version None)
Quarter: 2010Q3

REPORT INFORMATION
  Report Type: 
  Country: None (occurrence: None)
  Receive Date: 20100706
  Receipt Date: 20100624
  Transmission Date: 20110219
  Serious: Yes (Other)
  Sender: FDA-Public Use
  Company Number: US-BAYER-201024538NA

PATIENT
  Sex: Male

DRUGS (2)
  1. AVELOX [Suspect]
     Indication: LUNG DISORDER
     Route: 048
  2. MEDROL [Concomitant]
     Indication: LUNG DISORDER
     Dosage: DOSE-PACK

REACTIONS (3)
  - LIMB DISCOMFORT [None]
  - TENDON PAIN [None]
  - TENDON RUPTURE [None]
